FAERS Safety Report 10079445 (Version 2)
Quarter: 2014Q3

REPORT INFORMATION
  Report Type: Report from Study
  Country: JP (occurrence: JP)
  Receive Date: 20140415
  Receipt Date: 20140924
  Transmission Date: 20150326
  Serious: Yes (Death)
  Sender: FDA-Public Use
  Company Number: JP-PFIZER INC-2014101513

PATIENT
  Age: 46 Year
  Sex: Male
  Weight: 61 kg

DRUGS (8)
  1. TEMSIROLIMUS [Suspect]
     Active Substance: TEMSIROLIMUS
     Indication: RENAL CELL CARCINOMA
     Dosage: 25 MG, UNK
     Route: 041
     Dates: start: 20120217, end: 20120217
  2. BISMILLA [Concomitant]
     Dosage: 5 MG, 1X/DAY ON THE DAY OF TEMSIROLIMUS ADMINISTRATION
     Route: 042
     Dates: start: 20120305
  3. BISMILLA [Concomitant]
     Dosage: 5 MG, 1X/DAY ON THE DAY OF TEMSIROLIMUS ADMINISTRATION
     Route: 042
     Dates: start: 20120229
  4. BISMILLA [Concomitant]
     Dosage: 5 MG, 1X/DAY ON THE DAY OF TEMSIROLIMUS ADMINISTRATION
     Dates: start: 20120316
  5. BISMILLA [Concomitant]
     Indication: PROPHYLAXIS
     Dosage: 5 MG, 1X/DAY ON THE DAY OF TEMSIROLIMUS ADMINISTRATION
     Route: 042
     Dates: start: 20120217
  6. TEMSIROLIMUS [Suspect]
     Active Substance: TEMSIROLIMUS
     Dosage: 25 MG, UNK
     Route: 041
     Dates: start: 20120305, end: 20120305
  7. TEMSIROLIMUS [Suspect]
     Active Substance: TEMSIROLIMUS
     Dosage: 25 MG, UNK
     Route: 041
     Dates: start: 20120229, end: 20120229
  8. TEMSIROLIMUS [Suspect]
     Active Substance: TEMSIROLIMUS
     Dosage: 25 MG, UNK
     Route: 041
     Dates: start: 20120316, end: 20120316

REACTIONS (1)
  - Death [Fatal]

NARRATIVE: CASE EVENT DATE: 20120430
